FAERS Safety Report 9975183 (Version 1)
Quarter: 2014Q1

REPORT INFORMATION
  Report Type: Report from Study
  Country: US (occurrence: US)
  Receive Date: 20140306
  Receipt Date: 20140306
  Transmission Date: 20141002
  Serious: No
  Sender: FDA-Public Use
  Company Number: US-ABBVIE-13P-163-1160369-00

PATIENT
  Sex: Male

DRUGS (12)
  1. HUMIRA [Suspect]
     Indication: RHEUMATOID ARTHRITIS
     Dates: start: 20130721
  2. METHOTREXATE [Concomitant]
     Indication: RHEUMATOID ARTHRITIS
     Dosage: 8 PILLS ON SATURDAY
  3. FOLIC ACID [Concomitant]
     Indication: PRODUCT USED FOR UNKNOWN INDICATION
     Dosage: DAILY
  4. FLOMAX [Concomitant]
     Indication: PROSTATIC DISORDER
     Dosage: 0.4MG DAILY
  5. LEXAPRO [Concomitant]
     Indication: MEMORY IMPAIRMENT
     Dosage: 10MG DAILY
  6. ENALAPRIL [Concomitant]
     Indication: HYPERTENSION
     Dosage: 20MG DAILY
  7. HCTZ [Concomitant]
     Indication: HYPERTENSION
     Dosage: 25MG DAILY
  8. B12 [Concomitant]
     Indication: PRODUCT USED FOR UNKNOWN INDICATION
     Dosage: PILL DAILY
  9. B12 INJECTION [Concomitant]
     Indication: PRODUCT USED FOR UNKNOWN INDICATION
     Dosage: MONTHLY
  10. OMEPRAZOLE [Concomitant]
     Indication: GASTROOESOPHAGEAL REFLUX DISEASE
     Dosage: 20MG DAILY
  11. MELATONIN [Concomitant]
     Indication: PRODUCT USED FOR UNKNOWN INDICATION
  12. IBUPROPHEN [Concomitant]
     Indication: OSTEOARTHRITIS

REACTIONS (1)
  - Nasopharyngitis [Recovering/Resolving]
